FAERS Safety Report 7716484-7 (Version None)
Quarter: 2011Q3

REPORT INFORMATION
  Report Type: 
  Country: None (occurrence: None)
  Receive Date: 20110829
  Receipt Date: 20110818
  Transmission Date: 20111222
  Serious: Yes (Hospitalization)
  Sender: FDA-Public Use
  Company Number: FR-ASTRAZENECA-2011SE00452

PATIENT
  Age: 20719 Day
  Sex: Male

DRUGS (7)
  1. FLUCONAZOLE [Concomitant]
     Route: 048
     Dates: start: 20100309, end: 20100330
  2. PHENOXYMETHYL PENICILLIN [Concomitant]
     Route: 048
     Dates: start: 20090901, end: 20100330
  3. AUGMENTIN '125' [Suspect]
     Route: 048
     Dates: start: 20100309, end: 20100330
  4. VALACYCLOVIR HYDROCHLORIDE [Concomitant]
     Route: 048
     Dates: start: 20100309
  5. NEXIUM [Suspect]
     Route: 048
     Dates: start: 20100201, end: 20100330
  6. FLUCONAZOLE [Concomitant]
     Route: 048
  7. PHENOXYMETHYL PENICILLIN [Concomitant]
     Route: 048

REACTIONS (2)
  - STEVENS-JOHNSON SYNDROME [None]
  - SKIN TEST NEGATIVE [None]
